FAERS Safety Report 7860686-6 (Version None)
Quarter: 2011Q4

REPORT INFORMATION
  Report Type: 
  Country: None (occurrence: None)
  Receive Date: 20111026
  Receipt Date: 20111019
  Transmission Date: 20120403
  Serious: Yes (Life-Threatening, Other)
  Sender: FDA-Public Use
  Company Number: 2011SP047480

PATIENT
  Age: 15 Year
  Sex: Female

DRUGS (3)
  1. ABILIFY [Concomitant]
  2. LAMICTAL [Concomitant]
  3. SAPHRIS [Suspect]
     Indication: PRODUCT USED FOR UNKNOWN INDICATION
     Dosage: 5 MG;SL
     Route: 060
     Dates: start: 20110916, end: 20110916

REACTIONS (1)
  - ANAPHYLACTIC REACTION [None]
